FAERS Safety Report 21164633 (Version 1)
Quarter: 2022Q3

REPORT INFORMATION
  Report Type: Spontaneous
  Country: CN (occurrence: CN)
  Receive Date: 20220803
  Receipt Date: 20220803
  Transmission Date: 20221026
  Serious: Yes (Hospitalization, Other)
  Sender: FDA-Public Use
  Company Number: None

PATIENT
  Age: 63 Year
  Sex: Female
  Weight: 53 kg

DRUGS (21)
  1. CYCLOPHOSPHAMIDE [Suspect]
     Active Substance: CYCLOPHOSPHAMIDE
     Indication: Diffuse large B-cell lymphoma stage I
     Dosage: 1.1 G, QD [CYCLOPHOSPHAMIDE FOR INJECTION 1.1 G + 0.9% SODIUM CHLORIDE INJECTION 500ML, ONE-TIME]
     Route: 041
     Dates: start: 20220624, end: 20220624
  2. CYCLOPHOSPHAMIDE [Suspect]
     Active Substance: CYCLOPHOSPHAMIDE
     Indication: Extranodal marginal zone B-cell lymphoma (MALT type) stage I
  3. CYCLOPHOSPHAMIDE [Suspect]
     Active Substance: CYCLOPHOSPHAMIDE
     Indication: Diffuse large B-cell lymphoma
  4. CYCLOPHOSPHAMIDE [Suspect]
     Active Substance: CYCLOPHOSPHAMIDE
     Indication: Epstein-Barr virus test positive
  5. SODIUM CHLORIDE [Suspect]
     Active Substance: SODIUM CHLORIDE
     Indication: Medication dilution
     Dosage: 100 ML, QD [RITUXIMAB INJECTION 100 MG + 0.9% SODIUM CHLORIDE INJECTION 100 ML, ONE-TIME]
     Route: 041
     Dates: start: 20220623, end: 20220623
  6. SODIUM CHLORIDE [Suspect]
     Active Substance: SODIUM CHLORIDE
     Dosage: 500 ML, QD [RITUXIMAB INJECTION 500 MG + 0.9% SODIUM CHLORIDE INJECTION 500 ML, ONE-TIME]
     Route: 041
     Dates: start: 20220623, end: 20220623
  7. SODIUM CHLORIDE [Suspect]
     Active Substance: SODIUM CHLORIDE
     Dosage: 500 ML, QD [CYCLOPHOSPHAMIDE FOR INJECTION 1.1 G + 0.9% SODIUM CHLORIDE INJECTION 500ML, ONE-TIME]
     Route: 041
     Dates: start: 20220624, end: 20220624
  8. SODIUM CHLORIDE [Suspect]
     Active Substance: SODIUM CHLORIDE
     Dosage: 100 ML, QD [VINCRISTINE SULFATE FOR INJECTION 2 MG + 0.9% SODIUM CHLORIDE INJECTION 100 ML, ONE-TIME
     Route: 041
     Dates: start: 20220624, end: 20220624
  9. DEXTROSE MONOHYDRATE [Suspect]
     Active Substance: DEXTROSE MONOHYDRATE
     Indication: Medication dilution
     Dosage: 250 ML, QD  [PIRARUBICIN HYDROCHLORIDE FOR INJECTION 75MG + 5% GLUCOSE INJECTION 250ML, ONE-TIME]
     Route: 041
     Dates: start: 20220624, end: 20220624
  10. RITUXIMAB [Suspect]
     Active Substance: RITUXIMAB
     Indication: Extranodal marginal zone B-cell lymphoma (MALT type) stage I
     Dosage: 100 MG, QD [RITUXIMAB INJECTION 100 MG + 0.9% SODIUM CHLORIDE INJECTION 100 ML, ONE-TIME]
     Route: 041
     Dates: start: 20220623, end: 20220623
  11. RITUXIMAB [Suspect]
     Active Substance: RITUXIMAB
     Indication: Diffuse large B-cell lymphoma stage I
     Dosage: 500 MG, QD [RITUXIMAB INJECTION 500 MG + 0.9% SODIUM CHLORIDE INJECTION 500ML, ONE-TIME]
     Route: 041
     Dates: start: 20220623, end: 20220623
  12. RITUXIMAB [Suspect]
     Active Substance: RITUXIMAB
     Indication: Diffuse large B-cell lymphoma
  13. RITUXIMAB [Suspect]
     Active Substance: RITUXIMAB
     Indication: Epstein-Barr virus test positive
  14. PIRARUBICIN HYDROCHLORIDE [Suspect]
     Active Substance: PIRARUBICIN HYDROCHLORIDE
     Indication: Extranodal marginal zone B-cell lymphoma (MALT type) stage I
     Dosage: 75 MG, QD  [PIRARUBICIN HYDROCHLORIDE FOR INJECTION 75MG + 5% GLUCOSE INJECTION 250ML, ONE-TIME]
     Route: 041
     Dates: start: 20220624, end: 20220624
  15. PIRARUBICIN HYDROCHLORIDE [Suspect]
     Active Substance: PIRARUBICIN HYDROCHLORIDE
     Indication: Diffuse large B-cell lymphoma stage I
  16. PIRARUBICIN HYDROCHLORIDE [Suspect]
     Active Substance: PIRARUBICIN HYDROCHLORIDE
     Indication: Diffuse large B-cell lymphoma
  17. PIRARUBICIN HYDROCHLORIDE [Suspect]
     Active Substance: PIRARUBICIN HYDROCHLORIDE
     Indication: Epstein-Barr virus test positive
  18. VINCRISTINE SULFATE [Suspect]
     Active Substance: VINCRISTINE SULFATE
     Indication: Extranodal marginal zone B-cell lymphoma (MALT type) stage I
     Dosage: 2 MG, QD [VINCRISTINE SULFATE FOR INJECTION 2 MG + 0.9% SODIUM CHLORIDE INJECTION 100 ML, ONE-TIME]
     Route: 041
     Dates: start: 20220624, end: 20220624
  19. VINCRISTINE SULFATE [Suspect]
     Active Substance: VINCRISTINE SULFATE
     Indication: Diffuse large B-cell lymphoma stage I
  20. VINCRISTINE SULFATE [Suspect]
     Active Substance: VINCRISTINE SULFATE
     Indication: Diffuse large B-cell lymphoma
  21. VINCRISTINE SULFATE [Suspect]
     Active Substance: VINCRISTINE SULFATE
     Indication: Epstein-Barr virus test positive

REACTIONS (1)
  - Myelosuppression [Recovering/Resolving]

NARRATIVE: CASE EVENT DATE: 20220703
